FAERS Safety Report 11639199 (Version 1)
Quarter: 2015Q4

REPORT INFORMATION
  Report Type: Spontaneous
  Country: CA (occurrence: CA)
  Receive Date: 20151019
  Receipt Date: 20151019
  Transmission Date: 20160304
  Serious: Yes (Congenital Anomaly, Other)
  Sender: FDA-Public Use
  Company Number: CA-ALEMBIC PHARMACUETICALS LIMITED-2015SCAL000714

PATIENT

DRUGS (2)
  1. LAMOTRIGINE. [Suspect]
     Active Substance: LAMOTRIGINE
     Indication: PRODUCT USED FOR UNKNOWN INDICATION
     Dosage: LESS THAN 300 MG, QD
     Route: 064
  2. LAMOTRIGINE. [Suspect]
     Active Substance: LAMOTRIGINE
     Dosage: MORE THAN OR EQUAL TO 300 MG, QD
     Route: 064

REACTIONS (6)
  - Foetal exposure during pregnancy [Unknown]
  - Kidney malformation [Unknown]
  - Multiple congenital abnormalities [Unknown]
  - Congenital cardiovascular anomaly [Unknown]
  - Hypospadias [Unknown]
  - Cleft lip and palate [Unknown]
